FAERS Safety Report 16795009 (Version 1)
Quarter: 2019Q3

REPORT INFORMATION
  Report Type: Spontaneous
  Country: US (occurrence: US)
  Receive Date: 20190721
  Receipt Date: 20190721
  Transmission Date: 20191005
  Serious: No
  Sender: FDA-Public Use
  Company Number: None

PATIENT
  Sex: Male

DRUGS (1)
  1. HUMIRA [Suspect]
     Active Substance: ADALIMUMAB
     Indication: PSORIATIC ARTHROPATHY
     Route: 058
     Dates: start: 20190217

REACTIONS (7)
  - Pruritus [None]
  - Oral mucosal blistering [None]
  - Vitreous floaters [None]
  - Cough [None]
  - Furuncle [None]
  - Alopecia [None]
  - Rhinorrhoea [None]
